FAERS Safety Report 7406524-7 (Version None)
Quarter: 2011Q2

REPORT INFORMATION
  Report Type: 
  Country: None (occurrence: None)
  Receive Date: 20110405
  Receipt Date: 20110405
  Transmission Date: 20111010
  Serious: Yes (Hospitalization)
  Sender: FDA-Public Use
  Company Number: None

PATIENT
  Age: 53 Year
  Sex: Male
  Weight: 120.6568 kg

DRUGS (1)
  1. CLOZAPINE [Suspect]
     Indication: SCHIZOPHRENIA
     Dosage: 400MG HS PO
     Route: 048
     Dates: start: 20100120, end: 20110401

REACTIONS (3)
  - DEEP VEIN THROMBOSIS [None]
  - MAY-THURNER SYNDROME [None]
  - VENOUS OCCLUSION [None]
